FAERS Safety Report 17864642 (Version 1)
Quarter: 2020Q2

REPORT INFORMATION
  Report Type: Spontaneous
  Country: US (occurrence: US)
  Receive Date: 20200605
  Receipt Date: 20200605
  Transmission Date: 20200714
  Serious: Yes (Life-Threatening)
  Sender: FDA-Public Use
  Company Number: None

PATIENT
  Age: 36 Year
  Sex: Female
  Weight: 73.8 kg

DRUGS (1)
  1. GENERIC FOR BACTRIM DS SMZ-TMP DS TAB 800-160 [Suspect]
     Active Substance: SULFAMETHOXAZOLE\TRIMETHOPRIM
     Indication: URINARY TRACT INFECTION
     Dosage: );?
     Route: 048
     Dates: start: 20200602, end: 20200603

REACTIONS (1)
  - Pain [None]

NARRATIVE: CASE EVENT DATE: 20200603
